FAERS Safety Report 7956949-6 (Version None)
Quarter: 2011Q4

REPORT INFORMATION
  Report Type: 
  Country: None (occurrence: None)
  Receive Date: 20111205
  Receipt Date: 20111205
  Transmission Date: 20120403
  Serious: Yes (Other)
  Sender: FDA-Public Use
  Company Number: None

PATIENT
  Age: 53 Year
  Sex: Female
  Weight: 74.842 kg

DRUGS (1)
  1. CHORIONIC GONADOTROPIN [Suspect]
     Indication: WEIGHT DECREASED
     Dosage: 10 DROPS OF EACH BOTTLE
     Dates: start: 20101015, end: 20110101

REACTIONS (3)
  - ALOPECIA [None]
  - ABDOMINAL DISTENSION [None]
  - EMOTIONAL DISORDER [None]
